FAERS Safety Report 16710861 (Version 1)
Quarter: 2019Q3

REPORT INFORMATION
  Report Type: Report from Study
  Country: PL (occurrence: PL)
  Receive Date: 20190816
  Receipt Date: 20190816
  Transmission Date: 20191004
  Serious: Yes (Death)
  Sender: FDA-Public Use
  Company Number: PL-MYLANLABS-2019M1076466

PATIENT
  Age: 58 Year
  Sex: Male

DRUGS (2)
  1. CLOPIDOGREL [Suspect]
     Active Substance: CLOPIDOGREL BISULFATE
     Indication: ANTIPLATELET THERAPY
     Route: 065
  2. PRASUGREL. [Suspect]
     Active Substance: PRASUGREL
     Indication: ANTIPLATELET THERAPY
     Route: 065

REACTIONS (1)
  - Drug ineffective [Fatal]
